FAERS Safety Report 5677951-3 (Version None)
Quarter: 2008Q1

REPORT INFORMATION
  Report Type: 
  Country: None (occurrence: None)
  Receive Date: 20080319
  Receipt Date: 20080305
  Transmission Date: 20080703
  Serious: Yes (Hospitalization)
  Sender: FDA-Public Use
  Company Number: 2008S1003784

PATIENT
  Age: 48 Year
  Sex: Female
  Weight: 90.7194 kg

DRUGS (3)
  1. FENTANYL TRANSDERMAL SYSTEM [Suspect]
     Indication: BACK PAIN
     Dosage: 50 UG;EVERY HOUR;TRANSDERMAL
     Route: 062
     Dates: start: 20050101
  2. FENTANYL TRANSDERMAL SYSTEM [Suspect]
     Indication: FACIAL PAIN
     Dosage: 50 UG;EVERY HOUR;TRANSDERMAL
     Route: 062
     Dates: start: 20050101
  3. FENTANYL TRANSDERMAL SYSTEM [Suspect]
     Indication: NECK PAIN
     Dosage: 50 UG;EVERY HOUR;TRANSDERMAL
     Route: 062
     Dates: start: 20050101

REACTIONS (6)
  - AMNESIA [None]
  - BALANCE DISORDER [None]
  - DYSARTHRIA [None]
  - DYSKINESIA [None]
  - PHARMACEUTICAL PRODUCT COMPLAINT [None]
  - SEDATION [None]
